FAERS Safety Report 4467791-5 (Version None)
Quarter: 2004Q4

REPORT INFORMATION
  Report Type: 
  Country: None (occurrence: None)
  Receive Date: 20041004
  Receipt Date: 20041004
  Transmission Date: 20050328
  Serious: Yes (Life-Threatening)
  Sender: FDA-Public Use
  Company Number: None

PATIENT
  Age: 56 Year
  Sex: Female
  Weight: 76.2043 kg

DRUGS (1)
  1. NORVASC [Suspect]
     Indication: HYPERTENSION
     Dosage: 5 MG QD ORAL
     Route: 048
     Dates: start: 20010301, end: 20040927

REACTIONS (10)
  - AGGRESSION [None]
  - ANXIETY [None]
  - CHEST PAIN [None]
  - DIPLOPIA [None]
  - MAJOR DEPRESSION [None]
  - MENTAL STATUS CHANGES [None]
  - OEDEMA PERIPHERAL [None]
  - RASH [None]
  - SUICIDAL IDEATION [None]
  - VISION BLURRED [None]
